FAERS Safety Report 6603374-6 (Version None)
Quarter: 2010Q1

REPORT INFORMATION
  Report Type: 
  Country: None (occurrence: None)
  Receive Date: 20100218
  Receipt Date: 20100204
  Transmission Date: 20100710
  Serious: Yes (Hospitalization)
  Sender: FDA-Public Use
  Company Number: 2010AL000754

PATIENT
  Age: 51 Year
  Sex: Female

DRUGS (4)
  1. PHENOBARBITAL TABLETS USP, 30 MG (PUREPAC) (PHENOBARBITAL TABLETS USP, [Suspect]
     Indication: CONVULSION PROPHYLAXIS
     Dates: start: 20070301, end: 20070501
  2. GEMCITABINE [Concomitant]
  3. CISPLATIN [Concomitant]
  4. GEFITINI [Concomitant]

REACTIONS (2)
  - STEVENS-JOHNSON SYNDROME [None]
  - TOXIC EPIDERMAL NECROLYSIS [None]
